FAERS Safety Report 20576022 (Version 1)
Quarter: 2022Q1

REPORT INFORMATION
  Report Type: Spontaneous
  Country: SE (occurrence: SE)
  Receive Date: 20220310
  Receipt Date: 20220310
  Transmission Date: 20220423
  Serious: Yes (Hospitalization, Other)
  Sender: FDA-Public Use
  Company Number: SE-LUPIN PHARMACEUTICALS INC.-2022-03189

PATIENT
  Age: 53 Year
  Sex: Male

DRUGS (6)
  1. DICLOFENAC SODIUM [Suspect]
     Active Substance: DICLOFENAC SODIUM
     Indication: Exposure via eye contact
     Dosage: 1 MG/ML, TID, EYE DROPS
     Route: 061
  2. DICLOFENAC SODIUM [Suspect]
     Active Substance: DICLOFENAC SODIUM
     Indication: Conjunctivitis
  3. CHLORAMPHENICOL [Concomitant]
     Active Substance: CHLORAMPHENICOL
     Indication: Exposure via eye contact
     Dosage: 5 MG/ML, QID
     Route: 061
  4. CHLORAMPHENICOL [Concomitant]
     Active Substance: CHLORAMPHENICOL
     Indication: Conjunctivitis
  5. CARBOMER [Concomitant]
     Active Substance: CARBOMER
     Indication: Exposure via eye contact
     Dosage: 2 MILLIGRAM PER GRAM
     Route: 061
  6. CARBOMER [Concomitant]
     Active Substance: CARBOMER
     Indication: Conjunctivitis

REACTIONS (2)
  - Ulcerative keratitis [Recovered/Resolved]
  - Corneal perforation [Recovered/Resolved]
